FAERS Safety Report 5360883-8 (Version None)
Quarter: 2007Q2

REPORT INFORMATION
  Report Type: 
  Country: None (occurrence: None)
  Receive Date: 20070530
  Receipt Date: 20070326
  Transmission Date: 20071010
  Serious: No
  Sender: FDA-Public Use
  Company Number: 2007PV032401

PATIENT
  Age: 57 Year
  Sex: Female

DRUGS (6)
  1. BYETTA [Suspect]
     Indication: DIABETES MELLITUS
     Dosage: 5 MCG; BID; SC
     Route: 058
     Dates: start: 20070201, end: 20070201
  2. BYETTA [Suspect]
     Indication: DIABETES MELLITUS
     Dosage: 5 MCG; BID; SC
     Route: 058
     Dates: start: 20070201, end: 20070301
  3. METFORMIN HCL [Concomitant]
  4. ACTOS [Concomitant]
  5. DIOVAN HCT [Concomitant]
  6. VYTORIN [Concomitant]

REACTIONS (2)
  - INJECTION SITE URTICARIA [None]
  - PAIN IN EXTREMITY [None]
